FAERS Safety Report 7095335-0 (Version None)
Quarter: 2010Q4

REPORT INFORMATION
  Report Type: 
  Country: None (occurrence: None)
  Receive Date: 20101018
  Receipt Date: 20100503
  Transmission Date: 20110411
  Serious: Yes (Hospitalization)
  Sender: FDA-Public Use
  Company Number: US-WYE-H14951210

PATIENT
  Age: 86 Year
  Sex: Female

DRUGS (3)
  1. PREMARIN [Suspect]
     Indication: PRODUCT USED FOR UNKNOWN INDICATION
     Dosage: TOOK 10 OR 11 DOSES; ORAL
     Route: 048
  2. MONISTAT [Suspect]
     Indication: PRODUCT USED FOR UNKNOWN INDICATION
  3. VITAMINS WITH MINERALS (VITAMINS WITH MINERALS) [Concomitant]

REACTIONS (4)
  - BLOOD PRESSURE INCREASED [None]
  - DRUG WITHDRAWAL SYNDROME [None]
  - HYPERSENSITIVITY [None]
  - VULVOVAGINAL DRYNESS [None]
